FAERS Safety Report 9460079 (Version 1)
Quarter: 2013Q3

REPORT INFORMATION
  Report Type: Spontaneous
  Country: AU (occurrence: None)
  Receive Date: 20130814
  Receipt Date: 20130814
  Transmission Date: 20140515
  Serious: Yes (Hospitalization, Congenital Anomaly)
  Sender: FDA-Public Use
  Company Number: None

PATIENT
  Sex: Female
  Weight: 2.6 kg

DRUGS (4)
  1. NON-PMN MORPHINE SULFATE [Suspect]
     Indication: FOETAL EXPOSURE DURING PREGNANCY
     Dosage: SEE TEXT
     Route: 064
  2. MIDAZOLAM (MIDAZOLAM) [Suspect]
     Indication: FOETAL EXPOSURE DURING PREGNANCY
     Dosage: SEE TEXT
     Route: 064
  3. ANTIBIOTICS [Concomitant]
  4. TAMIFLU (OSELTAMIVIR PHOSPHATE) [Concomitant]

REACTIONS (5)
  - Ascites [None]
  - Urinary bladder rupture [None]
  - Urinary retention [None]
  - Neonatal respiratory distress syndrome [None]
  - Maternal drugs affecting foetus [None]
